FAERS Safety Report 16302830 (Version 1)
Quarter: 2019Q2

REPORT INFORMATION
  Report Type: Spontaneous
  Country: CA (occurrence: CA)
  Receive Date: 20190513
  Receipt Date: 20190513
  Transmission Date: 20190711
  Serious: Yes (Hospitalization, Other)
  Sender: FDA-Public Use
  Company Number: CA-009507513-1905CAN004541

PATIENT
  Age: 54 Year

DRUGS (1)
  1. KEYTRUDA [Suspect]
     Active Substance: PEMBROLIZUMAB
     Dosage: UNK UNK, CYCLICAL, 10 CYCLES COMPLETED.
     Route: 065

REACTIONS (7)
  - Colitis [Unknown]
  - Gastroenteritis [Unknown]
  - Feeling hot [Unknown]
  - Adrenal insufficiency [Recovering/Resolving]
  - Diarrhoea [Recovered/Resolved with Sequelae]
  - Hypotension [Not Recovered/Not Resolved]
  - Hypophysitis [Recovering/Resolving]
